FAERS Safety Report 21320058 (Version 1)
Quarter: 2022Q3

REPORT INFORMATION
  Report Type: Spontaneous
  Country: US (occurrence: US)
  Receive Date: 20220911
  Receipt Date: 20220911
  Transmission Date: 20221026
  Serious: No
  Sender: FDA-Public Use
  Company Number: US-SANOFI-01262627

PATIENT
  Sex: Male

DRUGS (4)
  1. ALLEGRA ALLERGY [Suspect]
     Active Substance: FEXOFENADINE HYDROCHLORIDE
     Dosage: UNK
  2. ZYRTEC [Concomitant]
     Active Substance: CETIRIZINE HYDROCHLORIDE
     Dosage: UNK
  3. CLARITIN [Concomitant]
     Active Substance: LORATADINE
     Dosage: UNK
  4. MAGNESIUM CHLORIDE [Concomitant]
     Active Substance: MAGNESIUM CHLORIDE
     Dosage: UNK

REACTIONS (1)
  - Contraindicated product administered [Unknown]
